FAERS Safety Report 7248712-9 (Version None)
Quarter: 2011Q1

REPORT INFORMATION
  Report Type: 
  Country: None (occurrence: None)
  Receive Date: 20110121
  Receipt Date: 20110121
  Transmission Date: 20110831
  Serious: Yes (Life-Threatening)
  Sender: FDA-Public Use
  Company Number: None

PATIENT
  Age: 65 Year
  Sex: Female

DRUGS (7)
  1. QUIXIL [Suspect]
     Indication: POST PROCEDURAL HAEMORRHAGE
  2. THIOPENTAL SODIUM [Concomitant]
  3. ROCURONIUM BROMIDE [Concomitant]
  4. PRESSURE REGULATOR (SPRAY (NOT INHALATION)) [Suspect]
     Dosage: 2-3 BARS
  5. FENTANYL [Concomitant]
  6. ISOFLURANE [Concomitant]
  7. BUPIVACAINE (BUPIVACAINE) [Concomitant]

REACTIONS (7)
  - HEART RATE DECREASED [None]
  - AIR EMBOLISM [None]
  - CENTRAL VENOUS PRESSURE INCREASED [None]
  - BLOOD PRESSURE SYSTOLIC DECREASED [None]
  - EMBOLISM VENOUS [None]
  - END-TIDAL CO2 DECREASED [None]
  - INTRACARDIAC THROMBUS [None]
